FAERS Safety Report 22371531 (Version 2)
Quarter: 2023Q2

REPORT INFORMATION
  Report Type: Spontaneous
  Country: CN (occurrence: CN)
  Receive Date: 20230526
  Receipt Date: 20230615
  Transmission Date: 20230721
  Serious: Yes (Life-Threatening, Hospitalization, Other)
  Sender: FDA-Public Use
  Company Number: CN-STERISCIENCE B.V.-2023-ST-001345

PATIENT
  Age: 73 Year
  Sex: Male
  Weight: 66 kg

DRUGS (3)
  1. KETOROLAC [Suspect]
     Active Substance: KETOROLAC TROMETHAMINE
     Indication: Gouty arthritis
     Dosage: 60 MILLIGRAM, QD, KETOROLAC INJECTION 60MG DILUTED IN SODIUM CHLORIDE 0.9% INJECTION IN 250ML
     Route: 042
     Dates: start: 202106, end: 202106
  2. SODIUM CHLORIDE [Suspect]
     Active Substance: SODIUM CHLORIDE
     Indication: Vehicle solution use
     Dosage: 250 MILLILITER, QD, KETOROLAC INJECTION 60MG DILUTED IN SODIUM CHLORIDE 0.9% INJECTION IN 250ML
     Route: 042
     Dates: start: 202106, end: 202106
  3. SODIUM CHLORIDE [Suspect]
     Active Substance: SODIUM CHLORIDE
     Indication: Gouty arthritis

REACTIONS (6)
  - Shock haemorrhagic [Recovered/Resolved]
  - Product preparation issue [Recovered/Resolved]
  - Incorrect dose administered [Recovered/Resolved]
  - Peptic ulcer [Recovered/Resolved]
  - Gastrointestinal haemorrhage [Recovered/Resolved]
  - Off label use [Unknown]

NARRATIVE: CASE EVENT DATE: 20210601
